FAERS Safety Report 21370785 (Version 1)
Quarter: 2022Q3

REPORT INFORMATION
  Report Type: Spontaneous
  Country: DE (occurrence: DE)
  Receive Date: 20220923
  Receipt Date: 20220923
  Transmission Date: 20221027
  Serious: Yes (Hospitalization)
  Sender: FDA-Public Use
  Company Number: DE-ADRED-05217-02

PATIENT
  Age: 58 Year
  Sex: Female
  Weight: 45 kg

DRUGS (11)
  1. CAPECITABINE [Suspect]
     Active Substance: CAPECITABINE
     Indication: Product used for unknown indication
     Dosage: 500 MG, 3-0-3-0, TABLETS (500 MG, 3-0-3-0, TABLETTEN)
     Route: 048
  2. ENTECAVIR [Concomitant]
     Active Substance: ENTECAVIR
     Indication: Product used for unknown indication
     Dosage: 0.5 MG, 0-0-0-1, TABLETS (0.5 MG, 0-0-0-1, TABLETTEN)
     Route: 048
  3. LEVETIRACETAM [Concomitant]
     Active Substance: LEVETIRACETAM
     Indication: Product used for unknown indication
     Dosage: 500 MG, 1-0-1-0, TABLETS (500 MG, 1-0-1-0, TABLETTEN)
     Route: 048
  4. ESOMEPRAZOLE [Concomitant]
     Active Substance: ESOMEPRAZOLE
     Indication: Product used for unknown indication
     Dosage: 40 MG, 1-0-1-0, TABLETS (40 MG, 1-0-1-0, TABLETTEN)
     Route: 048
  5. MORPHINE [Concomitant]
     Active Substance: MORPHINE
     Indication: Product used for unknown indication
     Dosage: 10 MG, 1-0-1-0, RETARD TABLETS (10 MG, 1-0-1-0, RETARD-TABLETTEN)
     Route: 048
  6. Imodium lingual acute [Concomitant]
     Indication: Product used for unknown indication
     Dosage: 2 MG, 1-1-1-0, MELTING TABLETS (2 MG, 1-1-1-0, SCHMELZTABLETTEN)
     Route: 048
  7. ASPIRIN [Concomitant]
     Active Substance: ASPIRIN
     Indication: Product used for unknown indication
     Dosage: 100 MG, 0-1-0-0, TABLETS (100 MG, 0-1-0-0, TABLETTEN)
     Route: 048
  8. AMPHO-MORONAL [Concomitant]
     Active Substance: AMPHOTERICIN B
     Indication: Product used for unknown indication
     Dosage: 100 MG/ML, 1-1-1-1, SUSPENSION
     Route: 048
  9. OeKolp forte Ovula 0,5mg [Concomitant]
     Indication: Product used for unknown indication
     Dosage: 0-0-0-1, SUPPOSITORIES (0-0-0-1, SUPPOSITORIEN)
     Route: 067
  10. Clinimix 5 percentage G-E two-chamber bag 1.5l [Concomitant]
     Indication: Product used for unknown indication
     Dosage: 0-0-0-1
     Route: 042
  11. Aplona 4.9g/bag [Concomitant]
     Indication: Product used for unknown indication
     Dosage: 1-1-1-0, POWDER BAG (1-1-1-0, PULVERBEUTEL)
     Route: 048

REACTIONS (2)
  - Urinary tract stoma complication [Recovering/Resolving]
  - Feeling cold [Recovering/Resolving]
